FAERS Safety Report 8317044-X (Version None)
Quarter: 2012Q2

REPORT INFORMATION
  Report Type: 
  Country: None (occurrence: None)
  Receive Date: 20120427
  Receipt Date: 20120425
  Transmission Date: 20120825
  Serious: Yes (Other)
  Sender: FDA-Public Use
  Company Number: US-PFIZER INC-2012103495

PATIENT
  Sex: Female
  Weight: 53.515 kg

DRUGS (5)
  1. CRESTOR [Concomitant]
     Indication: BLOOD CHOLESTEROL INCREASED
     Dosage: 10 MG, DAILY
  2. CHANTIX [Suspect]
     Indication: SMOKING CESSATION THERAPY
     Dosage: 0.5 MG, DAILY
     Dates: start: 20120101, end: 20120101
  3. CITALOPRAM [Concomitant]
     Indication: ANXIETY
     Dosage: 20 MG, UNK
  4. CHANTIX [Suspect]
     Dosage: UNK
     Dates: start: 20120101
  5. ESTRATEST H.S. [Concomitant]
     Indication: HORMONE LEVEL ABNORMAL
     Dosage: UNK

REACTIONS (5)
  - DYSGEUSIA [None]
  - NAUSEA [None]
  - GINGIVITIS [None]
  - PARAESTHESIA ORAL [None]
  - GLOSSODYNIA [None]
